FAERS Safety Report 7522777-9 (Version None)
Quarter: 2011Q2

REPORT INFORMATION
  Report Type: 
  Country: None (occurrence: None)
  Receive Date: 20110603
  Receipt Date: 20110519
  Transmission Date: 20111010
  Serious: Yes (Other)
  Sender: FDA-Public Use
  Company Number: CA-JNJFOC-20110510269

PATIENT
  Sex: Female
  Weight: 50 kg

DRUGS (6)
  1. REMICADE [Suspect]
     Route: 042
     Dates: start: 20110505
  2. REMICADE [Suspect]
     Dosage: INDUCTION WEEK 6
     Route: 042
     Dates: start: 20110519
  3. REMICADE [Suspect]
     Indication: CROHN'S DISEASE
     Route: 042
     Dates: end: 20090101
  4. HYDROCORTISONE [Concomitant]
     Indication: PREMEDICATION
     Route: 042
  5. ACETAMINOPHEN [Concomitant]
     Indication: PREMEDICATION
     Route: 048
  6. BENADRYL [Concomitant]
     Indication: PREMEDICATION
     Route: 042

REACTIONS (8)
  - DRY THROAT [None]
  - HOT FLUSH [None]
  - PHARYNGEAL OEDEMA [None]
  - SWOLLEN TONGUE [None]
  - PRURITUS [None]
  - PARAESTHESIA ORAL [None]
  - URTICARIA [None]
  - INFUSION RELATED REACTION [None]
